FAERS Safety Report 21225424 (Version 3)
Quarter: 2022Q4

REPORT INFORMATION
  Report Type: Report from Study
  Country: US (occurrence: None)
  Receive Date: 20220818
  Receipt Date: 20221219
  Transmission Date: 20230112
  Serious: Yes (Hospitalization)
  Sender: FDA-Public Use
  Company Number: US-Merck Healthcare KGaA-9344309

PATIENT
  Sex: Female

DRUGS (1)
  1. REBIF [Suspect]
     Active Substance: INTERFERON BETA-1A
     Indication: Multiple sclerosis
     Route: 058
     Dates: start: 20100706

REACTIONS (5)
  - Transient ischaemic attack [Recovering/Resolving]
  - Acute kidney injury [Unknown]
  - Hypotension [Unknown]
  - Urinary tract infection [Unknown]
  - Hyperkalaemia [Unknown]
